FAERS Safety Report 13152887 (Version 1)
Quarter: 2017Q1

REPORT INFORMATION
  Report Type: Spontaneous
  Country: IT (occurrence: IT)
  Receive Date: 20170126
  Receipt Date: 20170126
  Transmission Date: 20170428
  Serious: Yes (Other)
  Sender: FDA-Public Use
  Company Number: IT-BAXTER-2017BAX003201

PATIENT
  Age: 55 Year
  Sex: Female

DRUGS (2)
  1. DOXORUBICIN [Suspect]
     Active Substance: DOXORUBICIN
     Indication: BREAST CANCER
     Route: 016
     Dates: start: 20160620, end: 20160829
  2. ENDOXAN BAXTER [Suspect]
     Active Substance: CYCLOPHOSPHAMIDE
     Indication: BREAST CANCER
     Route: 016
     Dates: start: 20160620, end: 20160829

REACTIONS (5)
  - Weight decreased [Recovering/Resolving]
  - Mucosal inflammation [Recovering/Resolving]
  - Asthenia [Recovering/Resolving]
  - Decreased appetite [Recovering/Resolving]
  - Constipation [Recovering/Resolving]

NARRATIVE: CASE EVENT DATE: 20160829
